FAERS Safety Report 7546422-1 (Version None)
Quarter: 2011Q2

REPORT INFORMATION
  Report Type: 
  Country: None (occurrence: None)
  Receive Date: 20110614
  Receipt Date: 20110104
  Transmission Date: 20111010
  Serious: Yes (Hospitalization, Other)
  Sender: FDA-Public Use
  Company Number: US-BAYER-201024703NA

PATIENT
  Age: 27 Year
  Sex: Female
  Weight: 98 kg

DRUGS (13)
  1. YASMIN [Suspect]
     Indication: PRODUCT USED FOR UNKNOWN INDICATION
     Dosage: UNK
     Route: 048
     Dates: start: 20021201, end: 20110101
  2. HYDROCHLOROTHIAZIDE [Concomitant]
     Dosage: UNK
     Dates: start: 20080104
  3. ALBUTEROL SULFATE AUTOHALER [Concomitant]
     Dosage: UNK
     Dates: start: 20080104
  4. B-COMPLEX [VITAMIN B NOS] [Concomitant]
     Dosage: UNK
     Dates: start: 20070206
  5. MULTI-VITAMIN [Concomitant]
     Dosage: UNK
     Dates: start: 20070206
  6. DOCUSATE SODIUM [Concomitant]
     Dosage: UNK
     Dates: start: 20080105
  7. PHENDIMETRAZINE FUMARATE [Concomitant]
     Dosage: UNK
     Dates: start: 20080104
  8. FAMOTIDINE [Concomitant]
     Dosage: UNK
     Dates: start: 20080105
  9. DROSPIRENONE AND ETHINYL ESTRADIOL [Suspect]
     Indication: PRODUCT USED FOR UNKNOWN INDICATION
     Dosage: UNK
     Route: 048
     Dates: start: 20021201, end: 20080101
  10. CALCIUM CARBONATE [Concomitant]
     Dosage: UNK
     Dates: start: 20070206
  11. PREDNISONE [Concomitant]
     Dosage: UNK
     Dates: start: 20080104
  12. YAZ [Suspect]
     Indication: PRODUCT USED FOR UNKNOWN INDICATION
     Dosage: UNK
     Route: 048
     Dates: start: 20021201, end: 20080101
  13. POTASSIUM CHLORIDE [Concomitant]
     Dosage: UNK
     Dates: start: 20080104

REACTIONS (5)
  - GALLBLADDER INJURY [None]
  - CHOLELITHIASIS [None]
  - DEEP VEIN THROMBOSIS [None]
  - PULMONARY EMBOLISM [None]
  - CHOLECYSTITIS CHRONIC [None]
